FAERS Safety Report 13559446 (Version 4)
Quarter: 2017Q3

REPORT INFORMATION
  Report Type: Report from Study
  Country: US (occurrence: US)
  Receive Date: 20170518
  Receipt Date: 20170726
  Transmission Date: 20171127
  Serious: Yes (Other)
  Sender: FDA-Public Use
  Company Number: US-GILEAD-2017-0268638

PATIENT
  Age: 55 Year
  Sex: Female

DRUGS (4)
  1. AMBRISENTAN [Suspect]
     Active Substance: AMBRISENTAN
     Indication: PRODUCT USED FOR UNKNOWN INDICATION
     Dosage: 5 MG, QD
     Route: 065
     Dates: start: 20170113
  2. ADEMPAS [Concomitant]
     Active Substance: RIOCIGUAT
  3. TYVASO [Concomitant]
     Active Substance: TREPROSTINIL
  4. AMLODIPINE [Concomitant]
     Active Substance: AMLODIPINE BESYLATE

REACTIONS (14)
  - Head injury [Not Recovered/Not Resolved]
  - Cough [Unknown]
  - Pulmonary arterial hypertension [Not Recovered/Not Resolved]
  - Dysstasia [Unknown]
  - Skin ulcer [Not Recovered/Not Resolved]
  - Ocular discomfort [Unknown]
  - Headache [Unknown]
  - Dizziness [Not Recovered/Not Resolved]
  - Dyspnoea [Recovering/Resolving]
  - Fatigue [Not Recovered/Not Resolved]
  - Head injury [Unknown]
  - Hypoaesthesia [Not Recovered/Not Resolved]
  - Asthenia [Not Recovered/Not Resolved]
  - Fall [Unknown]

NARRATIVE: CASE EVENT DATE: 20170410
